FAERS Safety Report 17374468 (Version 5)
Quarter: 2021Q3

REPORT INFORMATION
  Report Type: Report from Study
  Country: FR (occurrence: FR)
  Receive Date: 20200206
  Receipt Date: 20210719
  Transmission Date: 20211014
  Serious: Yes (Hospitalization)
  Sender: FDA-Public Use
  Company Number: FR-ROCHE-2481566

PATIENT
  Age: 81 Year
  Sex: Male
  Weight: 66 kg

DRUGS (8)
  1. KARDEGIC [Concomitant]
     Active Substance: ASPIRIN DL-LYSINE
  2. BCG [Suspect]
     Active Substance: BCG VACCINE
     Indication: BLADDER CANCER
     Dosage: 1 DOSE?DATE OF MOST RECENT DOSE OF BCG (50 ML) PRIOR TO SAE: 13/MAR/2020.?ON 10/SEP/2020, HE RECEIVE
     Route: 043
     Dates: start: 20190904, end: 20191108
  3. APROVEL [Concomitant]
     Active Substance: IRBESARTAN
     Route: 048
  4. ATEZOLIZUMAB. [Suspect]
     Active Substance: ATEZOLIZUMAB
     Indication: BLADDER CANCER
     Dosage: DATE OF MOST RECENT DOSE OF ATEZOLIZUMAB (1200 MG) PRIOR TO SAE: 16/OCT/2019?C3 DATE OF MOST RECENT
     Route: 041
     Dates: start: 20190904, end: 20191016
  5. AMLOR [Concomitant]
     Active Substance: AMLODIPINE BESYLATE
     Route: 048
  6. LIPTRUZET [Concomitant]
     Active Substance: ATORVASTATIN CALCIUM\EZETIMIBE
  7. LEVOTHYROX [Concomitant]
     Active Substance: LEVOTHYROXINE
  8. CORTANCYL [Concomitant]
     Active Substance: PREDNISONE

REACTIONS (5)
  - Bacteraemia [Recovered/Resolved]
  - Arthralgia [Recovered/Resolved]
  - Pyrexia [Not Recovered/Not Resolved]
  - Peripheral ischaemia [Recovering/Resolving]
  - Device related bacteraemia [Not Recovered/Not Resolved]

NARRATIVE: CASE EVENT DATE: 20191108
